FAERS Safety Report 15891155 (Version 1)
Quarter: 2019Q1

REPORT INFORMATION
  Report Type: Spontaneous
  Country: GB (occurrence: GB)
  Receive Date: 20190130
  Receipt Date: 20190130
  Transmission Date: 20190417
  Serious: Yes (Hospitalization)
  Sender: FDA-Public Use
  Company Number: GB-MYLANLABS-2019M1008204

PATIENT
  Age: 28 Year
  Sex: Male

DRUGS (1)
  1. ACAMPROSATE [Suspect]
     Active Substance: ACAMPROSATE
     Indication: ALCOHOLISM
     Dosage: UNK
     Dates: end: 201807

REACTIONS (2)
  - Circulatory collapse [Unknown]
  - Internal haemorrhage [Unknown]

NARRATIVE: CASE EVENT DATE: 20180709
